FAERS Safety Report 6613998-8 (Version None)
Quarter: 2010Q1

REPORT INFORMATION
  Report Type: 
  Country: None (occurrence: None)
  Receive Date: 20100303
  Receipt Date: 20100303
  Transmission Date: 20100710
  Serious: Yes (Life-Threatening)
  Sender: FDA-Public Use
  Company Number: None

PATIENT
  Sex: Male
  Weight: 44 kg

DRUGS (2)
  1. CAMPATH [Suspect]
     Indication: PROPHYLAXIS AGAINST TRANSPLANT REJECTION
     Dosage: 0.4 MG/KG/OVER 2HR/IV
     Route: 042
     Dates: start: 20090219, end: 20090220
  2. TACROLIMUS [Suspect]
     Indication: PROPHYLAXIS AGAINST TRANSPLANT REJECTION
     Dosage: 1MG Q AM PO/.5MG Q PM PO
     Route: 048
     Dates: start: 20090220

REACTIONS (6)
  - B-CELL LYMPHOMA [None]
  - BACTERIAL INFECTION [None]
  - BLOOD CULTURE POSITIVE [None]
  - EPSTEIN-BARR VIRUS ASSOCIATED LYMPHOPROLIFERATIVE DISORDER [None]
  - MASS [None]
  - TONGUE DISORDER [None]
